FAERS Safety Report 5973812-0 (Version None)
Quarter: 2008Q4

REPORT INFORMATION
  Report Type: 
  Country: None (occurrence: None)
  Receive Date: 20081201
  Receipt Date: 20081201
  Transmission Date: 20090506
  Serious: Yes (Hospitalization, Disabling, Other)
  Sender: FDA-Public Use
  Company Number: CA-ABBOTT-08P-028-0488809-00

PATIENT
  Sex: Female
  Weight: 67.192 kg

DRUGS (1)
  1. HUMIRA [Suspect]
     Indication: RHEUMATOID ARTHRITIS
     Route: 058
     Dates: start: 20080424, end: 20080925

REACTIONS (6)
  - ARTHRITIS [None]
  - INCISION SITE COMPLICATION [None]
  - INTERVERTEBRAL DISC PROTRUSION [None]
  - PARAPLEGIA [None]
  - POST PROCEDURAL INFECTION [None]
  - THROMBOSIS [None]
